FAERS Safety Report 15162049 (Version 1)
Quarter: 2018Q3

REPORT INFORMATION
  Report Type: Report from Study
  Country: US (occurrence: US)
  Receive Date: 20180718
  Receipt Date: 20180718
  Transmission Date: 20181010
  Serious: No
  Sender: FDA-Public Use
  Company Number: US-AMGEN-USASP2014032322

PATIENT
  Age: 26 Year
  Sex: Female

DRUGS (1)
  1. ENBREL [Suspect]
     Active Substance: ETANERCEPT
     Indication: RHEUMATOID ARTHRITIS
     Dosage: 50 MG, EVERY SEVEN DAYS
     Route: 058
     Dates: start: 201301

REACTIONS (5)
  - Injection site reaction [Unknown]
  - Injection site warmth [Unknown]
  - Injection site erythema [Unknown]
  - Scratch [Unknown]
  - Injection site pruritus [Unknown]
